FAERS Safety Report 5529809-8 (Version None)
Quarter: 2007Q4

REPORT INFORMATION
  Report Type: 
  Country: None (occurrence: None)
  Receive Date: 20071129
  Receipt Date: 20070914
  Transmission Date: 20080405
  Serious: No
  Sender: FDA-Public Use
  Company Number: US-ABBOTT-07P-163-0416341-00

PATIENT
  Sex: Male
  Weight: 99 kg

DRUGS (6)
  1. MERIDIA [Suspect]
     Indication: WEIGHT CONTROL
     Route: 048
     Dates: start: 20070801, end: 20070903
  2. FENTANYL [Concomitant]
     Indication: DRUG USE FOR UNKNOWN INDICATION
  3. DULOXETINE HYDROCHLORIDE [Concomitant]
     Indication: DRUG USE FOR UNKNOWN INDICATION
  4. VENTOLIN [Concomitant]
     Indication: ASTHMA
  5. TIOTROPIUM BROMIDE [Concomitant]
     Indication: ASTHMA
     Route: 055
  6. LUNESTA [Concomitant]
     Indication: INSOMNIA
     Route: 048

REACTIONS (10)
  - AGGRESSION [None]
  - AMNESIA [None]
  - ASTHENIA [None]
  - DEPRESSION [None]
  - DYSPNOEA [None]
  - FAECES HARD [None]
  - FATIGUE [None]
  - NERVOUSNESS [None]
  - RECTAL HAEMORRHAGE [None]
  - SOCIAL AVOIDANT BEHAVIOUR [None]
